FAERS Safety Report 8148653 (Version 3)
Quarter: 2013Q3

REPORT INFORMATION
  Report Type: Spontaneous
  Country: US (occurrence: US)
  Receive Date: 20110922
  Receipt Date: 20130730
  Transmission Date: 20140515
  Serious: Yes (Other)
  Sender: FDA-Public Use
  Company Number: US-ASTRAZENECA-2011SE12644

PATIENT
  Age: 20882 Day
  Sex: Female
  Weight: 61.9 kg

DRUGS (16)
  1. SEROQUEL [Suspect]
     Route: 048
     Dates: start: 20020702
  2. SEROQUEL [Suspect]
     Route: 048
     Dates: start: 20100507
  3. EFFEXOR [Concomitant]
     Dosage: TK 3 TABLET PO QAM
     Route: 048
     Dates: start: 20020614
  4. EFFEXOR [Concomitant]
     Dosage: TK 3 CAPSULES  PO D
     Route: 048
     Dates: start: 20020104
  5. HYDROCODONE/APAP [Concomitant]
     Indication: PAIN
     Dosage: 7.5 MG/750 MG ,TAKE 1 TAB PO Q 6 H
     Route: 048
     Dates: start: 20020621
  6. DEPAKOTE [Concomitant]
     Dosage: TK 1 TABLET PO QAM AND 2 TABLET PO QHS
     Route: 048
     Dates: start: 20020702
  7. CLONAZEPAM [Concomitant]
     Dosage: TK 1 TABLET PO QAM AND QPM
     Route: 048
     Dates: start: 20020702
  8. DURADRIN [Concomitant]
     Indication: MIGRAINE
     Dosage: TAKE 1 OR 2 CAPSULE .MAY REPEAT Q 2 OR 3 H (DO NOT TAKE MORE THAN 5 IN ONE DAY)
     Route: 048
     Dates: start: 20020722
  9. PROMETHAZINE [Concomitant]
     Indication: NAUSEA
     Dosage: TK 1 TABLET PO Q 6 H
     Route: 048
     Dates: start: 20020719
  10. PROMETHAZINE [Concomitant]
     Indication: HEADACHE
     Dosage: TK 1 TABLET PO Q 6 H
     Route: 048
     Dates: start: 20020719
  11. PHENYTOIN [Concomitant]
  12. FLUOXETINE [Concomitant]
  13. LOVASTATIN [Concomitant]
  14. NEXIUM [Concomitant]
  15. METOPROLOL [Concomitant]
  16. AMBIEN [Concomitant]

REACTIONS (4)
  - Pancreatitis [Unknown]
  - Diabetic coma [Unknown]
  - Pancreatic neoplasm [Unknown]
  - Type 2 diabetes mellitus [Unknown]
